FAERS Safety Report 5224419-4 (Version None)
Quarter: 2007Q1

REPORT INFORMATION
  Report Type: 
  Country: None (occurrence: None)
  Receive Date: 20070130
  Receipt Date: 20070118
  Transmission Date: 20070707
  Serious: Yes (Hospitalization, Other)
  Sender: FDA-Public Use
  Company Number: JP-PFIZER INC-2006135294

PATIENT
  Sex: Male

DRUGS (5)
  1. LIPITOR [Suspect]
     Indication: HYPERLIPIDAEMIA
     Dosage: DAILY DOSE:10MG
     Route: 048
     Dates: start: 20060401, end: 20061024
  2. PANALDINE [Suspect]
     Indication: CEREBRAL INFARCTION
     Dosage: DAILY DOSE:10MG
     Route: 048
     Dates: start: 20060325, end: 20061027
  3. OLMETEC [Concomitant]
     Indication: HYPERTENSION
     Dosage: DAILY DOSE:20MG-FREQ:DAILY
     Route: 048
  4. CALBLOCK [Concomitant]
     Indication: HYPERTENSION
     Dosage: DAILY DOSE:16MG-FREQ:DAILY
     Route: 048
     Dates: start: 20060325
  5. NOVORAPID [Concomitant]
     Indication: DIABETES MELLITUS
     Dosage: TEXT:24DF-FREQ:DAILY
     Route: 058

REACTIONS (1)
  - ALVEOLITIS ALLERGIC [None]
